FAERS Safety Report 22137679 (Version 2)
Quarter: 2023Q2

REPORT INFORMATION
  Report Type: Spontaneous
  Country: US (occurrence: US)
  Receive Date: 20230325
  Receipt Date: 20230401
  Transmission Date: 20230722
  Serious: Yes (Hospitalization, Other)
  Sender: FDA-Public Use
  Company Number: US-MLMSERVICE-20230309-4156165-1

PATIENT
  Age: 49 Year
  Sex: Male

DRUGS (6)
  1. BUPIVACAINE HYDROCHLORIDE [Suspect]
     Active Substance: BUPIVACAINE HYDROCHLORIDE
     Indication: General anaesthesia
     Dosage: UNK
     Route: 008
  2. BUPIVACAINE [Suspect]
     Active Substance: BUPIVACAINE
     Indication: Pain management
     Dosage: UNK
     Route: 008
  3. FENTANYL [Concomitant]
     Active Substance: FENTANYL
     Indication: General anaesthesia
     Dosage: UNK
     Route: 065
  4. KETAMINE [Concomitant]
     Active Substance: KETAMINE
     Indication: General anaesthesia
     Dosage: UNK
     Route: 065
  5. PROPOFOL [Concomitant]
     Active Substance: PROPOFOL
     Indication: General anaesthesia
     Dosage: UNK
     Route: 065
  6. ROCURONIUM [Concomitant]
     Active Substance: ROCURONIUM BROMIDE
     Indication: General anaesthesia
     Dosage: UNK
     Route: 065

REACTIONS (3)
  - Sinus arrest [Recovered/Resolved]
  - Sinus bradycardia [Recovered/Resolved]
  - Tachycardia [Unknown]
